FAERS Safety Report 8237092-8 (Version None)
Quarter: 2012Q1

REPORT INFORMATION
  Report Type: 
  Country: None (occurrence: None)
  Receive Date: 20120327
  Receipt Date: 20120316
  Transmission Date: 20120608
  Serious: Yes (Hospitalization)
  Sender: FDA-Public Use
  Company Number: US-JNJFOC-20120308557

PATIENT
  Sex: Male
  Weight: 99.79 kg

DRUGS (1)
  1. REMICADE [Suspect]
     Indication: ARTHRITIS
     Route: 042
     Dates: start: 20110401

REACTIONS (2)
  - PYREXIA [None]
  - PULMONARY CONGESTION [None]
